FAERS Safety Report 7301492-0 (Version None)
Quarter: 2011Q1

REPORT INFORMATION
  Report Type: 
  Country: None (occurrence: None)
  Receive Date: 20110218
  Receipt Date: 20100622
  Transmission Date: 20110831
  Serious: No
  Sender: FDA-Public Use
  Company Number: US-BRISTOL-MYERS SQUIBB COMPANY-15160245

PATIENT
  Age: 52 Year
  Sex: Female
  Weight: 100 kg

DRUGS (3)
  1. KENALOG [Suspect]
     Indication: NERVE COMPRESSION
     Dosage: RA: CERVICAL EPIDURAL IN C-4, C-5, C-6 AND C-7 ON 29/4/2010.
     Route: 008
  2. TYLENOL EXTRA STRENGTH [Concomitant]
  3. KENALOG [Suspect]
     Indication: INTERVERTEBRAL DISC PROTRUSION
     Dosage: RA: CERVICAL EPIDURAL IN C-4, C-5, C-6 AND C-7 ON 29/4/2010.
     Route: 008

REACTIONS (7)
  - DECREASED APPETITE [None]
  - COUGH [None]
  - WEIGHT DECREASED [None]
  - NIGHT SWEATS [None]
  - HEADACHE [None]
  - INSOMNIA [None]
  - NAUSEA [None]
